FAERS Safety Report 24641675 (Version 1)
Quarter: 2024Q4

REPORT INFORMATION
  Report Type: Spontaneous
  Country: CA (occurrence: CA)
  Receive Date: 20241120
  Receipt Date: 20241120
  Transmission Date: 20250115
  Serious: Yes (Other)
  Sender: CSL BEHRING
  Company Number: CA-BEH-2024185625

PATIENT
  Age: 56 Year
  Sex: Female

DRUGS (1)
  1. ALBUMIN HUMAN [Suspect]
     Active Substance: ALBUMIN HUMAN
     Indication: Hepatorenal syndrome
     Dosage: 50 ML
     Route: 042

REACTIONS (7)
  - Transfusion-related circulatory overload [Recovering/Resolving]
  - Breath sounds abnormal [Recovering/Resolving]
  - Confusional state [Recovering/Resolving]
  - Crepitations [Recovering/Resolving]
  - Hypoxia [Recovering/Resolving]
  - Tachypnoea [Recovering/Resolving]
  - Hypertension [Recovering/Resolving]
